FAERS Safety Report 20500486 (Version 1)
Quarter: 2022Q1

REPORT INFORMATION
  Report Type: Spontaneous
  Country: US (occurrence: US)
  Receive Date: 20220222
  Receipt Date: 20220222
  Transmission Date: 20220423
  Serious: Yes (Death, Other)
  Sender: FDA-Public Use
  Company Number: US-SA-SAC20220221000545

PATIENT
  Age: 53 Year
  Sex: Male

DRUGS (1)
  1. ZANTAC [Suspect]
     Active Substance: RANITIDINE HYDROCHLORIDE
     Indication: Dyspepsia
     Dosage: 75 MG, FREQUENCY:OCASSIONAL
     Dates: start: 201001, end: 201301

REACTIONS (2)
  - Oesophageal carcinoma [Fatal]
  - Oesophageal discomfort [Fatal]

NARRATIVE: CASE EVENT DATE: 20130601
